FAERS Safety Report 25377404 (Version 1)
Quarter: 2025Q2

REPORT INFORMATION
  Report Type: Spontaneous
  Country: US (occurrence: US)
  Receive Date: 20250530
  Receipt Date: 20250530
  Transmission Date: 20250716
  Serious: No
  Sender: SANOFI AVENTIS
  Company Number: US-SA-2025SA153882

PATIENT
  Sex: Female
  Weight: 100 kg

DRUGS (14)
  1. DUPIXENT [Suspect]
     Active Substance: DUPILUMAB
     Indication: Narcolepsy
     Dosage: 200 MG, QOW
     Route: 058
  2. DUPIXENT [Suspect]
     Active Substance: DUPILUMAB
     Indication: Cataplexy
  3. LUMRYZ [Concomitant]
     Active Substance: SODIUM OXYBATE
  4. LUMRYZ [Concomitant]
     Active Substance: SODIUM OXYBATE
  5. ASMANEX [Concomitant]
     Active Substance: MOMETASONE FUROATE
  6. ADDERALL [Concomitant]
     Active Substance: AMPHETAMINE ASPARTATE\AMPHETAMINE SULFATE\DEXTROAMPHETAMINE SACCHARATE\DEXTROAMPHETAMINE SULFATE
  7. VITAMIN B12 [Concomitant]
     Active Substance: CYANOCOBALAMIN
  8. PREVACID [Concomitant]
     Active Substance: LANSOPRAZOLE
  9. GEMMILY [Concomitant]
     Active Substance: ETHINYL ESTRADIOL\NORETHINDRONE ACETATE
  10. CORLANOR [Concomitant]
     Active Substance: IVABRADINE HYDROCHLORIDE
  11. SINGULAIR [Concomitant]
     Active Substance: MONTELUKAST SODIUM
  12. ADVIL [Concomitant]
     Active Substance: IBUPROFEN
  13. SUMATRIPTAN SUCCINATE [Concomitant]
     Active Substance: SUMATRIPTAN SUCCINATE
  14. PROZAC [Concomitant]
     Active Substance: FLUOXETINE HYDROCHLORIDE

REACTIONS (2)
  - Dizziness postural [Unknown]
  - Product use in unapproved indication [Unknown]
